FAERS Safety Report 5126077-6 (Version None)
Quarter: 2006Q4

REPORT INFORMATION
  Report Type: 
  Country: None (occurrence: None)
  Receive Date: 20061012
  Receipt Date: 20061004
  Transmission Date: 20070319
  Serious: Yes (Hospitalization)
  Sender: FDA-Public Use
  Company Number: FR-JNJFOC-20061001043

PATIENT
  Sex: Female
  Weight: 60 kg

DRUGS (9)
  1. LEUSTATIN [Suspect]
     Indication: SYSTEMIC MASTOCYTOSIS
     Route: 042
  2. BACTRIM FAIBLE [Concomitant]
  3. ZELITREX [Concomitant]
  4. NEULASTA [Concomitant]
  5. SPECIAFOLDINE [Concomitant]
  6. CACIT VITAMIN D3 [Concomitant]
  7. FOSAMAX [Concomitant]
  8. INIPOMP [Concomitant]
  9. NOXAFIL [Concomitant]

REACTIONS (2)
  - ACCIDENTAL OVERDOSE [None]
  - MEDICATION ERROR [None]
